APPROVED DRUG PRODUCT: FLUOXETINE HYDROCHLORIDE
Active Ingredient: FLUOXETINE HYDROCHLORIDE
Strength: EQ 60MG BASE
Dosage Form/Route: TABLET;ORAL
Application: A209419 | Product #001 | TE Code: AB
Applicant: PH HEALTH LTD
Approved: Nov 16, 2017 | RLD: No | RS: No | Type: RX